FAERS Safety Report 7812317-9 (Version None)
Quarter: 2011Q4

REPORT INFORMATION
  Report Type: 
  Country: None (occurrence: None)
  Receive Date: 20111013
  Receipt Date: 20111007
  Transmission Date: 20120403
  Serious: Yes (Death, Hospitalization)
  Sender: FDA-Public Use
  Company Number: US-GLAXOSMITHKLINE-A0713324A

PATIENT
  Age: 64 Year
  Sex: Male
  Weight: 113.6 kg

DRUGS (5)
  1. HUMALOG [Concomitant]
     Dates: start: 20021001, end: 20060218
  2. GLUCOPHAGE [Concomitant]
  3. AVANDIA [Suspect]
     Indication: TYPE 2 DIABETES MELLITUS
     Route: 048
     Dates: start: 20020506, end: 20060218
  4. NIASPAN [Concomitant]
  5. INSULIN [Concomitant]

REACTIONS (6)
  - DEATH [None]
  - FLUID RETENTION [None]
  - ANXIETY [None]
  - CARDIAC FAILURE CONGESTIVE [None]
  - ACUTE MYOCARDIAL INFARCTION [None]
  - RENAL FAILURE [None]
